FAERS Safety Report 7961904-6 (Version None)
Quarter: 2011Q4

REPORT INFORMATION
  Report Type: 
  Country: None (occurrence: None)
  Receive Date: 20111207
  Receipt Date: 20111205
  Transmission Date: 20120403
  Serious: Yes (Other)
  Sender: FDA-Public Use
  Company Number: US-PFIZER INC-2011297494

PATIENT
  Sex: Female
  Weight: 70.3 kg

DRUGS (4)
  1. FUROSEMIDE [Concomitant]
     Indication: DIURETIC THERAPY
     Dosage: 80 MG, UNK
  2. PROTONIX [Concomitant]
     Dosage: 30 MG, UNK
  3. NORCO [Concomitant]
     Indication: PAIN
     Dosage: UNK
     Route: 048
  4. DILANTIN-125 [Suspect]
     Indication: CONVULSION
     Dosage: UNK

REACTIONS (1)
  - HIP FRACTURE [None]
